FAERS Safety Report 8999984 (Version 2)
Quarter: 2013Q2

REPORT INFORMATION
  Report Type: Spontaneous
  Country: US (occurrence: US)
  Receive Date: 20130102
  Receipt Date: 20130502
  Transmission Date: 20140414
  Serious: Yes (Other)
  Sender: FDA-Public Use
  Company Number: US-BAYER-2012-136318

PATIENT
  Age: 49 Year
  Sex: Female

DRUGS (1)
  1. MIRENA [Suspect]
     Indication: CONTRACEPTION
     Dosage: 20 MCG/24HR, CONT
     Route: 015
     Dates: start: 201108, end: 20130201

REACTIONS (11)
  - Abdominal distension [None]
  - Abdominal pain lower [None]
  - Gastric disorder [None]
  - Weight increased [None]
  - Post procedural discomfort [None]
  - Menopause [None]
  - Procedural pain [None]
  - Device dislocation [None]
  - Device difficult to use [None]
  - Breast pain [None]
  - Menstruation irregular [Not Recovered/Not Resolved]
